FAERS Safety Report 4650818-5 (Version None)
Quarter: 2005Q2

REPORT INFORMATION
  Report Type: 
  Country: None (occurrence: None)
  Receive Date: 20050503
  Receipt Date: 20050422
  Transmission Date: 20051028
  Serious: Yes (Hospitalization)
  Sender: FDA-Public Use
  Company Number: PHEH2005US04793

PATIENT
  Age: 75 Year
  Sex: Male

DRUGS (4)
  1. AREDIA [Suspect]
     Indication: MULTIPLE MYELOMA
     Dosage: 90 MG, ONCE/SINGLE
     Route: 042
     Dates: start: 20030929, end: 20030929
  2. PROTONIX ^WYETH-AYERST^ [Concomitant]
  3. NIASPAN [Concomitant]
  4. PLAVIX [Concomitant]

REACTIONS (2)
  - CELLULITIS ORBITAL [None]
  - EYE SWELLING [None]
